FAERS Safety Report 19709756 (Version 2)
Quarter: 2021Q3

REPORT INFORMATION
  Report Type: Report from Study
  Country: US (occurrence: US)
  Receive Date: 20210816
  Receipt Date: 20210927
  Transmission Date: 20211014
  Serious: Yes (Other)
  Sender: FDA-Public Use
  Company Number: US-GILEAD-2021-0544224

PATIENT
  Age: 66 Year
  Sex: Male

DRUGS (4)
  1. BICTEGRAVIR W/EMTRICITABINE/TENOFOVIR ALAFENAMIDE [Suspect]
     Active Substance: BICTEGRAVIR\EMTRICITABINE\TENOFOVIR ALAFENAMIDE
     Dosage: UNK, QD; MISSED A FEW WEEKS OF TX
     Route: 048
  2. BICTEGRAVIR W/EMTRICITABINE/TENOFOVIR ALAFENAMIDE [Suspect]
     Active Substance: BICTEGRAVIR\EMTRICITABINE\TENOFOVIR ALAFENAMIDE
     Indication: HIV INFECTION
     Dosage: UNK, QD
     Route: 048
     Dates: start: 201802
  3. ELVITEGRAVIR/COBICISTAT/EMTRICITABINE/TENOFOVIR ALAFENAMIDE [Suspect]
     Active Substance: COBICISTAT\ELVITEGRAVIR\EMTRICITABINE\TENOFOVIR
     Indication: HIV INFECTION
     Dosage: UNK, QD
     Route: 048
     Dates: start: 201701, end: 201802
  4. BICTEGRAVIR W/EMTRICITABINE/TENOFOVIR ALAFENAMIDE [Suspect]
     Active Substance: BICTEGRAVIR\EMTRICITABINE\TENOFOVIR ALAFENAMIDE
     Dosage: UNK, QD; MISSED 1 MONTH OF TX
     Route: 048

REACTIONS (6)
  - Product dose omission issue [Recovered/Resolved]
  - Arthropod bite [Unknown]
  - Seasonal allergy [Recovered/Resolved]
  - Prostate cancer [Not Recovered/Not Resolved]
  - COVID-19 [Recovered/Resolved]
  - Blood creatine increased [Unknown]

NARRATIVE: CASE EVENT DATE: 201802
